FAERS Safety Report 7479352-4 (Version None)
Quarter: 2011Q2

REPORT INFORMATION
  Report Type: 
  Country: None (occurrence: None)
  Receive Date: 20110513
  Receipt Date: 20110502
  Transmission Date: 20111010
  Serious: No
  Sender: FDA-Public Use
  Company Number: US-ELI_LILLY_AND_COMPANY-US201102001258

PATIENT
  Sex: Male
  Weight: 115.19 kg

DRUGS (1)
  1. HUMALOG [Suspect]
     Indication: TYPE 2 DIABETES MELLITUS
     Dosage: 15 U, 2/D
     Route: 058
     Dates: start: 20110126

REACTIONS (1)
  - INJECTION SITE HAEMATOMA [None]
